FAERS Safety Report 18975071 (Version 8)
Quarter: 2022Q1

REPORT INFORMATION
  Report Type: Report from Study
  Country: GB (occurrence: GB)
  Receive Date: 20210306
  Receipt Date: 20220308
  Transmission Date: 20220423
  Serious: Yes (Hospitalization, Disabling)
  Sender: FDA-Public Use
  Company Number: GB-CELLTRION INC.-2020GB028028

PATIENT
  Weight: 99.8 kg

DRUGS (73)
  1. RITUXIMAB [Suspect]
     Active Substance: RITUXIMAB
     Indication: Mantle cell lymphoma
     Dosage: UNK
     Route: 065
     Dates: start: 20200303, end: 20200309
  2. RITUXIMAB [Suspect]
     Active Substance: RITUXIMAB
     Indication: Mantle cell lymphoma
     Dosage: 1 DF, QD (1X/DAY (DOSAGE FORM: 16) LAST DOSE ADMINISTERED ON 09-MAR-2020
     Route: 041
     Dates: start: 20200309, end: 20200309
  3. RITUXIMAB [Suspect]
     Active Substance: RITUXIMAB
     Dosage: 1 DF, QD (1X/DAY (DOSAGE FORM: 16)
     Route: 041
     Dates: start: 20200309, end: 20200309
  4. RITUXIMAB [Suspect]
     Active Substance: RITUXIMAB
     Dosage: 1 DF, QD (DOSAGE FORM: 318)
     Route: 041
     Dates: start: 20200309, end: 20200309
  5. RITUXIMAB [Suspect]
     Active Substance: RITUXIMAB
     Dosage: 1DF (DOSAGE FORM: 230)
     Route: 042
     Dates: start: 20200309, end: 20200309
  6. RITUXIMAB [Suspect]
     Active Substance: RITUXIMAB
     Dosage: 1 DF (DOSAGE FORM: 16)
     Route: 042
     Dates: start: 20200309, end: 20200309
  7. RITUXIMAB [Suspect]
     Active Substance: RITUXIMAB
     Dosage: 1 DF; ADDITIONAL INFO: LAST DOSE ADMINISTERED ON 09-MAR-2020?DOSAGE FORM: 16
     Route: 041
     Dates: start: 20200303, end: 20200309
  8. RITUXIMAB [Suspect]
     Active Substance: RITUXIMAB
     Dosage: 1 DF (DOSAGE FORM: 230)
     Route: 041
     Dates: start: 20200303, end: 20200309
  9. BENDAMUSTINE [Suspect]
     Active Substance: BENDAMUSTINE
     Indication: Mantle cell lymphoma
     Route: 042
     Dates: start: 20200309, end: 20200309
  10. BENDAMUSTINE [Suspect]
     Active Substance: BENDAMUSTINE
     Dosage: DOSE FORM: 120
     Route: 041
     Dates: start: 20200309
  11. BENDAMUSTINE [Suspect]
     Active Substance: BENDAMUSTINE
     Dosage: UNK, QD (LAST DOSE ADMINISTERED ON 09/MAR/2020)
     Route: 042
     Dates: start: 20200309
  12. BENDAMUSTINE [Suspect]
     Active Substance: BENDAMUSTINE
     Route: 042
     Dates: start: 20200309, end: 20210309
  13. BENDAMUSTINE [Suspect]
     Active Substance: BENDAMUSTINE
     Dosage: 1 DF (DOSE FORM: 201)
     Route: 041
     Dates: start: 20210309
  14. BENDAMUSTINE [Suspect]
     Active Substance: BENDAMUSTINE
     Dosage: DOSE FORM: 16 (CUMULATIVE DOSE: 1.0 DF)
     Route: 042
     Dates: start: 20200309, end: 20200309
  15. BENDAMUSTINE [Suspect]
     Active Substance: BENDAMUSTINE
     Dosage: UNK (DOSE FORM: 230)
     Route: 041
     Dates: start: 20200309
  16. BENDAMUSTINE [Suspect]
     Active Substance: BENDAMUSTINE
     Route: 041
     Dates: start: 20210309
  17. BENDAMUSTINE [Suspect]
     Active Substance: BENDAMUSTINE
     Dosage: 1 DF, QD (DOSE FORM: 230)
     Route: 041
     Dates: start: 20210309
  18. BENDAMUSTINE [Suspect]
     Active Substance: BENDAMUSTINE
     Dosage: 1 DF, QD (DOSE FORM: 230)
     Route: 041
     Dates: start: 20210309
  19. BENDAMUSTINE [Suspect]
     Active Substance: BENDAMUSTINE
     Dosage: 120 DF, QD (DOSE FORM: 230) (CUMULATIVE DOSE: 1440.0DF)
     Route: 041
     Dates: start: 20200309, end: 20200309
  20. BENDAMUSTINE [Suspect]
     Active Substance: BENDAMUSTINE
     Dosage: 1 DF, QD (DOSE FORM OF 356)
     Route: 041
     Dates: start: 20200309, end: 20200309
  21. BENDAMUSTINE [Suspect]
     Active Substance: BENDAMUSTINE
     Dosage: UNK, QD (LAST DOSE ADMINISTERED ON 09-MAR-2020)
     Route: 042
     Dates: start: 20200309, end: 20200309
  22. BENDAMUSTINE [Suspect]
     Active Substance: BENDAMUSTINE
     Dosage: DOSE FORM: 120
     Route: 042
  23. BENDAMUSTINE [Suspect]
     Active Substance: BENDAMUSTINE
     Dosage: 1 DF (DOSE FORM: 120)
     Route: 041
     Dates: start: 20200309
  24. BENDAMUSTINE [Suspect]
     Active Substance: BENDAMUSTINE
     Dosage: 1 DF, QD (DOSE FORM: 356)
     Route: 041
     Dates: start: 20200309
  25. BENDAMUSTINE [Suspect]
     Active Substance: BENDAMUSTINE
     Route: 042
     Dates: start: 20200309, end: 20200309
  26. BENDAMUSTINE [Suspect]
     Active Substance: BENDAMUSTINE
     Dosage: 1 DF, QD
     Route: 041
     Dates: start: 20200309
  27. BENDAMUSTINE [Suspect]
     Active Substance: BENDAMUSTINE
     Dosage: 1 DF, QD
     Route: 041
     Dates: start: 20200309
  28. BENDAMUSTINE [Suspect]
     Active Substance: BENDAMUSTINE
     Dosage: UNK (1X/DAY (DOSAGE FORM: 201))
     Route: 041
     Dates: start: 20200309
  29. BENDAMUSTINE [Suspect]
     Active Substance: BENDAMUSTINE
     Dosage: DOSE FORM: 16
     Route: 041
     Dates: start: 20200309, end: 20200309
  30. BENDAMUSTINE [Suspect]
     Active Substance: BENDAMUSTINE
     Dosage: 1 DF, QD
     Route: 041
     Dates: start: 20210309
  31. BENDAMUSTINE [Suspect]
     Active Substance: BENDAMUSTINE
     Dosage: UNK (1X/DAY (DOSAGE FORM: 201))
     Route: 041
     Dates: start: 20200309, end: 20200309
  32. BENDAMUSTINE [Suspect]
     Active Substance: BENDAMUSTINE
     Dosage: 120 DF, QD (DOSE FORM: 230) (CUMULATIVE DOSE: 1440.0DF)
     Route: 041
     Dates: start: 20200309, end: 20200309
  33. BENDAMUSTINE [Suspect]
     Active Substance: BENDAMUSTINE
     Route: 042
     Dates: start: 20200309, end: 20200309
  34. BENDAMUSTINE [Suspect]
     Active Substance: BENDAMUSTINE
     Dosage: UNK ONCE DAILY (CYCLIC)
     Route: 042
     Dates: start: 20200309, end: 20200309
  35. BENDAMUSTINE [Suspect]
     Active Substance: BENDAMUSTINE
     Dosage: DOSE FORM: 230
     Route: 041
     Dates: start: 20200309, end: 20200309
  36. BENDAMUSTINE [Suspect]
     Active Substance: BENDAMUSTINE
     Dosage: 120
     Route: 041
     Dates: start: 20200309
  37. BENDAMUSTINE [Suspect]
     Active Substance: BENDAMUSTINE
     Dosage: UNK UNK, QD (1X/DAY (DOSAGE FORM: 201)
     Route: 041
     Dates: start: 20200309
  38. BENDAMUSTINE [Suspect]
     Active Substance: BENDAMUSTINE
     Dosage: 120 (LAST DOSE ADMINISTERED ON 09/MAR/2020)
     Route: 041
     Dates: start: 20200309, end: 20200309
  39. BENDAMUSTINE [Suspect]
     Active Substance: BENDAMUSTINE
     Dosage: UNK (DOSE FORM: 356)
     Route: 041
     Dates: start: 20200309
  40. BENDAMUSTINE [Suspect]
     Active Substance: BENDAMUSTINE
     Dosage: PHARMACEUTICAL DOSAGE FORM: 16 (LAST DOSE ADMINISTERED ON 09-MAR-2020)
     Route: 040
     Dates: start: 20200309, end: 20200309
  41. BENDAMUSTINE [Suspect]
     Active Substance: BENDAMUSTINE
     Route: 042
     Dates: start: 20200309, end: 20200309
  42. BENDAMUSTINE [Suspect]
     Active Substance: BENDAMUSTINE
     Dosage: DOSE FORM: 120
     Route: 041
     Dates: start: 20200309, end: 20200309
  43. BENDAMUSTINE [Suspect]
     Active Substance: BENDAMUSTINE
     Dosage: DOSE FORM: 230
     Route: 041
     Dates: start: 20200309, end: 20200309
  44. BENDAMUSTINE [Suspect]
     Active Substance: BENDAMUSTINE
     Dosage: 1 DF, QD
     Route: 041
     Dates: start: 20210309
  45. BENDAMUSTINE [Suspect]
     Active Substance: BENDAMUSTINE
     Dosage: 1 DF, QD
     Route: 041
     Dates: start: 20210309
  46. CYTARABINE [Suspect]
     Active Substance: CYTARABINE
     Indication: Mantle cell lymphoma
     Dosage: UNK
     Route: 065
     Dates: start: 20200309, end: 20200311
  47. CYTARABINE [Suspect]
     Active Substance: CYTARABINE
     Dosage: PHARMACEUTICAL DOSE FORM: 16
     Route: 065
     Dates: start: 20200115, end: 20200303
  48. CYTARABINE [Suspect]
     Active Substance: CYTARABINE
     Dosage: 20 MG, QD, ADDITIONAL INFO: LAST ADMINISTERED ON 11-MAR-2020 (DOSE FORM: 386)
     Route: 041
     Dates: start: 20210309, end: 20210311
  49. CYTARABINE [Suspect]
     Active Substance: CYTARABINE
     Dosage: UNK (DOSAGE TEXT: 60 MG)
     Route: 065
     Dates: start: 20200311
  50. CYTARABINE [Suspect]
     Active Substance: CYTARABINE
     Dosage: 20 MG, QD, (DOSE FORM: 230)
     Route: 041
     Dates: start: 20210309
  51. CYTARABINE [Suspect]
     Active Substance: CYTARABINE
     Dosage: 20 MILLIGRAM DAILY; 20 MG, ONCE DAILY (REPORTED AS MOST RECENT DOSE ON 11-MAR-2020)LAST ADMINISTERE
     Route: 041
     Dates: start: 20200309, end: 20200311
  52. CYTARABINE [Suspect]
     Active Substance: CYTARABINE
     Dosage: 20 MG, QD (ON 11 MAR 2020, HE RECEIVED MOST RECENT DOSE OF CYTARABINE PRIOR TO EVENT
     Route: 041
     Dates: start: 20200309, end: 20200311
  53. CYTARABINE [Suspect]
     Active Substance: CYTARABINE
     Dosage: 20 MG, QD, MOST RECENT DOSE ON 11/MAR/2020 (DOSE FORM: 230)
     Route: 041
     Dates: start: 20200115, end: 20200303
  54. CYTARABINE [Suspect]
     Active Substance: CYTARABINE
     Dosage: 20 MG, QD (ON 11 MAR 2020, HE RECEIVED MOST RECENT DOSE OF CYTARABINE PRIOR TO EVENT?230
     Route: 041
     Dates: start: 20200309, end: 20200311
  55. CYTARABINE [Suspect]
     Active Substance: CYTARABINE
     Dosage: 20 MG (DOSE FORM: 16) (CUMULATIVE DOSE: 20.0 MG)
     Route: 041
     Dates: start: 20200309, end: 20200311
  56. CYTARABINE [Suspect]
     Active Substance: CYTARABINE
     Dosage: 20 MG, QD (DOSE FORM: 230)
     Route: 041
     Dates: start: 20200303
  57. CYTARABINE [Suspect]
     Active Substance: CYTARABINE
     Dosage: 20 MG (DOSE FORM: 16)
     Route: 041
     Dates: start: 20200309, end: 20200311
  58. CYTARABINE [Suspect]
     Active Substance: CYTARABINE
     Dosage: ADDITIONAL INFO: LAST ADMINISTERED ON 11-MAR-2020, MOST RECENT DOSE (DOSE FORM: 386)
     Route: 065
     Dates: start: 20200311
  59. CYTARABINE [Suspect]
     Active Substance: CYTARABINE
     Dosage: 60 MG; ADDITIONAL INFO: LAST ADMINISTERED ON 11-MAR-2020?DOSAGE FORM 386
     Route: 065
     Dates: start: 20200311
  60. CYTARABINE [Suspect]
     Active Substance: CYTARABINE
     Dosage: 20 MG, QD, CUMULATIVE DOSE OF 1040 MG (DOSE FORM: 386)
     Route: 041
     Dates: start: 20200309, end: 20200311
  61. CYTARABINE [Suspect]
     Active Substance: CYTARABINE
     Dosage: 20 MG, QD, CUMULATIVE DOSE OF 1040MG (DOSE FORM: 386)?DOSAGE FORM 16
     Route: 041
     Dates: start: 20200115, end: 20200303
  62. CYTARABINE [Suspect]
     Active Substance: CYTARABINE
     Dosage: MOST RECENT DOSE, CUMULATIVE DOSE 1040 MG (DOASGE FORM: 386)
     Route: 065
     Dates: start: 20200311
  63. PARSACLISIB [Suspect]
     Active Substance: PARSACLISIB
     Indication: Mantle cell lymphoma
     Dosage: 20 MILLIGRAM DAILY;ADDITIONAL INFO: INCB 50465 (MOST RECENT DOSE RECEIVED ON 03-MAR-2020)
     Route: 048
     Dates: start: 20200115, end: 20200303
  64. PARSACLISIB [Suspect]
     Active Substance: PARSACLISIB
     Dosage: 20 MG, QD (DOSE PRIOR TO THE SERIOUS ADVERSE EVENTS (SAES) WAS TAKEN ON 03MAR2020), 245, INCB 50465
     Route: 048
     Dates: start: 20200115, end: 20200303
  65. PARSACLISIB [Suspect]
     Active Substance: PARSACLISIB
     Dosage: STRENGTH-20MG QD
     Route: 048
     Dates: start: 20200115, end: 20200303
  66. PARSACLISIB [Suspect]
     Active Substance: PARSACLISIB
     Dosage: UNK, (DOSE FORM: 245)
     Route: 048
     Dates: start: 20200115, end: 20200303
  67. MEROPENEM [Concomitant]
     Active Substance: MEROPENEM
     Indication: Cough
     Dosage: UNK
     Route: 065
     Dates: start: 20200309
  68. MEROPENEM [Concomitant]
     Active Substance: MEROPENEM
     Indication: Malaise
     Dosage: UNK
  69. MEROPENEM [Concomitant]
     Active Substance: MEROPENEM
     Dosage: UNK
     Route: 065
     Dates: start: 20200319
  70. ACETAMINOPHEN [Concomitant]
     Active Substance: ACETAMINOPHEN
     Indication: Cough
     Dosage: UNK
  71. ACETAMINOPHEN [Concomitant]
     Active Substance: ACETAMINOPHEN
     Indication: Malaise
     Dosage: UNK
     Route: 065
     Dates: start: 20200319
  72. ACETAMINOPHEN [Concomitant]
     Active Substance: ACETAMINOPHEN
     Dates: start: 20200309
  73. ACETAMINOPHEN [Concomitant]
     Active Substance: ACETAMINOPHEN
     Dates: start: 20200321

REACTIONS (5)
  - Neutropenic sepsis [Recovered/Resolved]
  - Pneumonia [Recovered/Resolved]
  - Bronchitis [Recovered/Resolved]
  - Neutrophil count decreased [Recovered/Resolved]
  - Off label use [Unknown]

NARRATIVE: CASE EVENT DATE: 20200309
